FAERS Safety Report 4600260-8 (Version None)
Quarter: 2005Q1

REPORT INFORMATION
  Report Type: 
  Country: None (occurrence: None)
  Receive Date: 20050307
  Receipt Date: 20050124
  Transmission Date: 20050727
  Serious: Yes (Death, Life-Threatening)
  Sender: FDA-Public Use
  Company Number: JP-GLAXOSMITHKLINE-B0369287A

PATIENT
  Age: 74 Year
  Sex: Male
  Weight: 35 kg

DRUGS (3)
  1. MODACIN [Suspect]
     Indication: SERRATIA INFECTION
     Dosage: 2G PER DAY
     Route: 042
     Dates: start: 20050108, end: 20050116
  2. FOSFOMYCIN CALCIUM [Concomitant]
  3. CIPROFLOXACIN HYDROCHLORIDE [Concomitant]

REACTIONS (15)
  - ALANINE AMINOTRANSFERASE INCREASED [None]
  - ASPARTATE AMINOTRANSFERASE INCREASED [None]
  - BLOOD ALKALINE PHOSPHATASE INCREASED [None]
  - BLOOD CREATININE DECREASED [None]
  - CONDITION AGGRAVATED [None]
  - DISEASE RECURRENCE [None]
  - DYSPNOEA EXACERBATED [None]
  - GAMMA-GLUTAMYLTRANSFERASE INCREASED [None]
  - HAEMATOCRIT DECREASED [None]
  - HAEMOGLOBIN DECREASED [None]
  - HEPATIC FUNCTION ABNORMAL [None]
  - OEDEMA [None]
  - PYOTHORAX [None]
  - RED BLOOD CELL COUNT DECREASED [None]
  - TUMOUR MARKER INCREASED [None]
